FAERS Safety Report 11686001 (Version 1)
Quarter: 2015Q4

REPORT INFORMATION
  Report Type: Spontaneous
  Country: FR (occurrence: FR)
  Receive Date: 20151030
  Receipt Date: 20151030
  Transmission Date: 20160304
  Serious: Yes (Hospitalization)
  Sender: FDA-Public Use
  Company Number: FR-TEVA-604069ISR

PATIENT
  Age: 5 Year
  Sex: Male
  Weight: 16.2 kg

DRUGS (22)
  1. CYTARABINE SANDOZ [Suspect]
     Active Substance: CYTARABINE
     Dosage: ELAM 02 PROTOCOL - DAY 4 TO DAY 5
     Dates: start: 20150624, end: 20150625
  2. ETOPOSIDE. [Suspect]
     Active Substance: ETOPOSIDE
     Dosage: ELAM 02 PROTOCOL - DAY 3
     Dates: start: 20150623
  3. ETOPOSIDE. [Suspect]
     Active Substance: ETOPOSIDE
     Dosage: ELAM 02 PROTOCOL - DAY 4
     Dates: start: 20150624
  4. METHOTREXATE BIODIM [Suspect]
     Active Substance: METHOTREXATE
     Dosage: ELAM 02 PROTOCOL - DAY 7
     Route: 037
     Dates: start: 20150627
  5. DOXORUBICINE TEVA [Suspect]
     Active Substance: DOXORUBICIN
     Dosage: ELAM 02 PROTOCOL - DAY 2
     Dates: start: 20150617
  6. DEPO-MEDROL [Suspect]
     Active Substance: METHYLPREDNISOLONE ACETATE
     Dosage: ELAM 02 PROTOCOL - DAY 7
     Dates: start: 20150627
  7. DOXORUBICINE TEVA [Suspect]
     Active Substance: DOXORUBICIN
     Dosage: ELAM 02 PROTOCOL - DAY 1
     Dates: start: 20150616
  8. DOXORUBICINE TEVA [Suspect]
     Active Substance: DOXORUBICIN
     Dosage: ELAM 02 PROTOCOL - DAY 4
     Dates: start: 20150624
  9. CYTARABINE SANDOZ [Suspect]
     Active Substance: CYTARABINE
     Dosage: ELAM 02 PROTOCOL - DAY 1
     Dates: start: 20150616
  10. CYTARABINE SANDOZ [Suspect]
     Active Substance: CYTARABINE
     Dosage: ELAM 02 PROTOCOL - DAY 3
     Dates: start: 20150623
  11. METHOTREXATE BIODIM [Suspect]
     Active Substance: METHOTREXATE
     Dosage: ELAM 02 PROTOCOL - DAY 1
     Route: 037
     Dates: start: 20150616
  12. ETOPOSIDE. [Suspect]
     Active Substance: ETOPOSIDE
     Dosage: ELAM 02 PROTOCOL - DAY 1
     Dates: start: 20150616
  13. DOXORUBICINE TEVA [Suspect]
     Active Substance: DOXORUBICIN
     Dosage: ELAM 02 PROTOCOL - DAY 3
     Dates: start: 20150623
  14. CYTARABINE SANDOZ [Suspect]
     Active Substance: CYTARABINE
     Dosage: ELAM 02 PROTOCOL - DAY 2
     Dates: start: 20150617
  15. METHOTREXATE BIODIM [Suspect]
     Active Substance: METHOTREXATE
     Dosage: ELAM 02 PROTOCOL - DAY 4
     Route: 037
     Dates: start: 20150624
  16. ETOPOSIDE. [Suspect]
     Active Substance: ETOPOSIDE
     Dosage: ELAM 02 PROTOCOL - DAY 2
     Dates: start: 20150617
  17. ARACYTINE [Suspect]
     Active Substance: CYTARABINE
     Dosage: ELAM 02 PROTOCOL - DAY 7
     Dates: start: 20150627
  18. ARACYTINE [Suspect]
     Active Substance: CYTARABINE
     Dosage: ELAM 02 PROTOCOL - DAY 1
     Route: 024
     Dates: start: 20150616
  19. LEDERFOLINE [Concomitant]
     Active Substance: LEUCOVORIN CALCIUM
     Dosage: ELAM 02 PROTOCOL
     Route: 042
     Dates: start: 20150617, end: 20150625
  20. ARACYTINE [Suspect]
     Active Substance: CYTARABINE
     Dosage: ELAM 02 PROTOCOL - DAY 4
     Dates: start: 20150624
  21. DEPO-MEDROL [Suspect]
     Active Substance: METHYLPREDNISOLONE ACETATE
     Dosage: ELAM 02 PROTOCOL - DAY 1
     Dates: start: 20150616
  22. DEPO-MEDROL [Suspect]
     Active Substance: METHYLPREDNISOLONE ACETATE
     Dosage: ELAM 02 PROTOCOL - DAY 4
     Dates: start: 20150624

REACTIONS (5)
  - Rash maculo-papular [Recovered/Resolved]
  - Bone marrow failure [Recovering/Resolving]
  - Hyperthermia [Unknown]
  - Sepsis [Unknown]
  - Febrile bone marrow aplasia [Recovering/Resolving]

NARRATIVE: CASE EVENT DATE: 201506
